FAERS Safety Report 8937185 (Version 1)
Quarter: 2012Q4

REPORT INFORMATION
  Report Type: Spontaneous
  Country: US (occurrence: None)
  Receive Date: 20121128
  Receipt Date: 20121128
  Transmission Date: 20130627
  Serious: Yes (Hospitalization)
  Sender: FDA-Public Use
  Company Number: None

PATIENT
  Age: 73 Year
  Sex: Male
  Weight: 60.6 kg

DRUGS (38)
  1. COUMADIN [Suspect]
     Indication: ATRIAL FIBRILLATION
     Dosage: CHRONIC
     Route: 048
  2. PLAVIX [Suspect]
     Indication: ATRIAL FIBRILLATION
     Dosage: CHRONIC
     Route: 048
  3. LISINOPRIL [Suspect]
     Indication: HYPERTENSION
     Dosage: CHRONIC
  4. SPIRONOLACTONE [Suspect]
     Indication: DIURETIC THERAPY
     Dosage: CHRONIC
  5. FUROSEMIDE [Suspect]
     Indication: CONGESTIVE HEART FAILURE
     Dosage: CHRONIC
  6. DULCOLAX [Concomitant]
  7. DUONEB [Concomitant]
  8. RESTORIL [Concomitant]
  9. LORAZEPAM [Concomitant]
  10. NORCO [Concomitant]
  11. LOMOTIL [Concomitant]
  12. LIDOCAINE [Concomitant]
  13. IMODIUM [Concomitant]
  14. LISPRO [Concomitant]
  15. MONISTAT [Concomitant]
  16. VENTOLIN [Concomitant]
  17. LANTUS INSULIN [Concomitant]
  18. XANAX [Concomitant]
  19. QUESTRAN [Concomitant]
  20. EFFEXOR [Concomitant]
  21. PROBIOTIC [Concomitant]
  22. VIT D3 [Concomitant]
  23. NEPHRO VITE RX [Concomitant]
  24. ASA [Concomitant]
  25. SPIRONOLACTONE [Concomitant]
  26. DEEP SEA NASAL SPRAY [Concomitant]
  27. TYIENOL [Concomitant]
  28. PRAVASTATIN [Concomitant]
  29. PREDNISONE [Concomitant]
  30. PROVIGIL [Concomitant]
  31. TRAZODONE [Concomitant]
  32. ISOSORBIDE [Concomitant]
  33. NITROFURANTOIN [Concomitant]
  34. ALLOPURINOL [Concomitant]
  35. NOVOLOG [Concomitant]
  36. METOPROLOL [Concomitant]
  37. WELLBUTRIN [Concomitant]
  38. SYNTHROID [Concomitant]

REACTIONS (5)
  - Epistaxis [None]
  - Nasal dryness [None]
  - International normalised ratio increased [None]
  - Haemorrhagic anaemia [None]
  - Renal failure acute [None]
